FAERS Safety Report 17102820 (Version 8)
Quarter: 2020Q4

REPORT INFORMATION
  Report Type: Spontaneous
  Country: CA (occurrence: CA)
  Receive Date: 20191203
  Receipt Date: 20201107
  Transmission Date: 20210113
  Serious: Yes (Other)
  Sender: FDA-Public Use
  Company Number: CA-CELLTRION INC.-2018CA019448

PATIENT

DRUGS (22)
  1. INFLECTRA [Suspect]
     Active Substance: INFLIXIMAB-DYYB
     Dosage: 460 MG, AT 2,6 WEEKS THEN EVERY 8 WEEKS
     Route: 042
     Dates: start: 20190611
  2. INFLECTRA [Suspect]
     Active Substance: INFLIXIMAB-DYYB
     Dosage: 460 MG, AT 2,6 WEEKS THEN EVERY 8 WEEKS
     Route: 042
     Dates: start: 20191119
  3. INFLECTRA [Suspect]
     Active Substance: INFLIXIMAB-DYYB
     Dosage: 460 MG, AT 2,6 WEEKS THEN EVERY 8 WEEKS
     Route: 042
     Dates: start: 20200514
  4. INFLECTRA [Suspect]
     Active Substance: INFLIXIMAB-DYYB
     Dosage: 460 MG, AT 2,6 WEEKS THEN EVERY 8 WEEKS
     Route: 042
     Dates: start: 20201029
  5. IMURAN [Concomitant]
     Active Substance: AZATHIOPRINE
     Dosage: 150 MG, 1X/DAY
     Route: 048
     Dates: start: 201710
  6. INFLECTRA [Suspect]
     Active Substance: INFLIXIMAB-DYYB
     Indication: COLITIS ULCERATIVE
     Dosage: 400 MG, AT 2, 6 WEEKS THEN EVERY 8 WEEKS
     Route: 042
     Dates: start: 20180315
  7. INFLECTRA [Suspect]
     Active Substance: INFLIXIMAB-DYYB
     Dosage: 460 MG, AT 2,6 WEEKS THEN EVERY 8 WEEKS
     Route: 042
     Dates: start: 20180425
  8. ASACOL [Concomitant]
     Active Substance: MESALAMINE
     Dosage: 800 MG, 2X/DAY
     Route: 048
     Dates: start: 2003
  9. INFLECTRA [Suspect]
     Active Substance: INFLIXIMAB-DYYB
     Dosage: 460 MG, AT 2,6 WEEKS THEN EVERY 8 WEEKS
     Route: 042
     Dates: start: 20200319
  10. PREDNISONE. [Concomitant]
     Active Substance: PREDNISONE
     Dosage: 40 MG, 1X/DAY
     Route: 048
     Dates: start: 201712
  11. INFLECTRA [Suspect]
     Active Substance: INFLIXIMAB-DYYB
     Dosage: 460 MG, AT 2,6 WEEKS THEN EVERY 8 WEEKS
     Route: 042
     Dates: start: 20200123
  12. INFLECTRA [Suspect]
     Active Substance: INFLIXIMAB-DYYB
     Dosage: 460 MG, AT 2,6 WEEKS THEN EVERY 8 WEEKS
     Route: 042
     Dates: start: 20201029
  13. LIPITOR [Concomitant]
     Active Substance: ATORVASTATIN CALCIUM
     Dosage: 10 MG, 1X/DAY
     Route: 048
     Dates: start: 2000
  14. INFLECTRA [Suspect]
     Active Substance: INFLIXIMAB-DYYB
     Dosage: 400 MG, AT 2, 6 WEEKS THEN EVERY 8 WEEKS
     Route: 042
     Dates: start: 20180328, end: 20180328
  15. INFLECTRA [Suspect]
     Active Substance: INFLIXIMAB-DYYB
     Dosage: 450 MG, AT 2,6 WEEKS THEN EVERY 8 WEEKS
     Route: 042
     Dates: start: 20180821
  16. INFLECTRA [Suspect]
     Active Substance: INFLIXIMAB-DYYB
     Dosage: 460 MG, AT 2,6 WEEKS THEN EVERY 8 WEEKS
     Route: 042
     Dates: start: 20190731
  17. INFLECTRA [Suspect]
     Active Substance: INFLIXIMAB-DYYB
     Dosage: 460 MG, AT 2,6 WEEKS THEN EVERY 8 WEEKS
     Route: 042
     Dates: start: 20190926
  18. INFLECTRA [Suspect]
     Active Substance: INFLIXIMAB-DYYB
     Dosage: 460 MG, AT 2,6 WEEKS THEN EVERY 8 WEEKS
     Route: 042
     Dates: start: 20200708
  19. INFLECTRA [Suspect]
     Active Substance: INFLIXIMAB-DYYB
     Dosage: 460 MG, AT 2,6 WEEKS THEN EVERY 8 WEEKS
     Route: 042
     Dates: start: 20181010
  20. INFLECTRA [Suspect]
     Active Substance: INFLIXIMAB-DYYB
     Dosage: 460 MG, AT 2,6 WEEKS THEN EVERY 8 WEEKS
     Route: 042
     Dates: start: 20190410
  21. INFLECTRA [Suspect]
     Active Substance: INFLIXIMAB-DYYB
     Dosage: 460 MG, AT 2,6 WEEKS THEN EVERY 8 WEEKS
     Route: 042
     Dates: start: 20200903
  22. INFLECTRA [Suspect]
     Active Substance: INFLIXIMAB-DYYB
     Dosage: 460 MG, AT 2,6 WEEKS THEN EVERY 8 WEEKS
     Route: 042
     Dates: start: 20190130

REACTIONS (8)
  - Rectal haemorrhage [Recovered/Resolved]
  - Inappropriate schedule of product administration [Unknown]
  - Blood pressure fluctuation [Not Recovered/Not Resolved]
  - Heart rate decreased [Unknown]
  - Blood pressure increased [Unknown]
  - Condition aggravated [Recovering/Resolving]
  - Frequent bowel movements [Recovering/Resolving]
  - Incorrect dose administered [Unknown]

NARRATIVE: CASE EVENT DATE: 20180328
